FAERS Safety Report 5328796-5 (Version None)
Quarter: 2007Q2

REPORT INFORMATION
  Report Type: 
  Country: None (occurrence: None)
  Receive Date: 20070518
  Receipt Date: 20070509
  Transmission Date: 20071010
  Serious: Yes (Death)
  Sender: FDA-Public Use
  Company Number: JP-ROCHE-497699

PATIENT
  Age: 52 Year
  Sex: Female

DRUGS (1)
  1. ROCEPHIN [Suspect]
     Route: 050
     Dates: start: 20060529

REACTIONS (1)
  - ANAPHYLACTIC SHOCK [None]
